FAERS Safety Report 7754420-8 (Version None)
Quarter: 2011Q3

REPORT INFORMATION
  Report Type: 
  Country: None (occurrence: None)
  Receive Date: 20110915
  Receipt Date: 20110906
  Transmission Date: 20111222
  Serious: Yes (Hospitalization, Other)
  Sender: FDA-Public Use
  Company Number: US-ELI_LILLY_AND_COMPANY-US201107006087

PATIENT
  Sex: Female
  Weight: 65.306 kg

DRUGS (4)
  1. PROMETHAZINE [Concomitant]
     Dosage: 12.5 MG, PRN
  2. EFFIENT [Suspect]
     Indication: STENT PLACEMENT
     Dosage: 60 MG, LOADING DOSE
     Route: 048
     Dates: start: 20110715
  3. EFFIENT [Suspect]
     Dosage: 10 MG, QD
     Route: 065
  4. ATENOLOL [Concomitant]
     Dosage: 25 MG, UNK

REACTIONS (1)
  - THROMBOSIS IN DEVICE [None]
